FAERS Safety Report 8588051-7 (Version None)
Quarter: 2012Q3

REPORT INFORMATION
  Report Type: 
  Country: None (occurrence: None)
  Receive Date: 20120813
  Receipt Date: 20120807
  Transmission Date: 20120928
  Serious: No
  Sender: FDA-Public Use
  Company Number: US-PFIZER INC-2012192366

PATIENT
  Age: 55 Year
  Sex: Male
  Weight: 92.971 kg

DRUGS (6)
  1. ABILIFY [Concomitant]
     Indication: BIPOLAR DISORDER
     Dosage: UNK
  2. KLONOPIN [Concomitant]
     Indication: BIPOLAR DISORDER
     Dosage: UNK
  3. TRAZODONE [Concomitant]
     Indication: BIPOLAR DISORDER
     Dosage: UNK
  4. INVEGA SUSTENNA [Concomitant]
     Indication: BIPOLAR DISORDER
     Dosage: UNK
  5. DEPAKOTE [Concomitant]
     Indication: BIPOLAR DISORDER
     Dosage: UNK
  6. VIAGRA [Suspect]
     Indication: ERECTILE DYSFUNCTION
     Dosage: 50 MG, 1X/DAY
     Route: 048
     Dates: start: 20120804, end: 20120804

REACTIONS (1)
  - DRUG INEFFECTIVE [None]
